FAERS Safety Report 5422327-7 (Version None)
Quarter: 2007Q3

REPORT INFORMATION
  Report Type: 
  Country: None (occurrence: None)
  Receive Date: 20070730
  Receipt Date: 20070615
  Transmission Date: 20080115
  Serious: Yes (Other)
  Sender: FDA-Public Use
  Company Number: 200711430BWH

PATIENT
  Age: 38 Year
  Sex: Female
  Weight: 62.1428 kg

DRUGS (1)
  1. AVELOX [Suspect]
     Indication: SINUSITIS
     Dosage: 400 MG, QD, ORAL
     Route: 048
     Dates: start: 20070502, end: 20070503

REACTIONS (5)
  - ANXIETY [None]
  - HYPOAESTHESIA [None]
  - NERVOUSNESS [None]
  - PARAESTHESIA [None]
  - SUFFOCATION FEELING [None]
